FAERS Safety Report 5108278-6 (Version None)
Quarter: 2006Q3

REPORT INFORMATION
  Report Type: 
  Country: None (occurrence: None)
  Receive Date: 20060919
  Receipt Date: 20060208
  Transmission Date: 20061208
  Serious: No
  Sender: FDA-Public Use
  Company Number: US-BRISTOL-MYERS SQUIBB COMPANY-13276399

PATIENT
  Sex: Male
  Weight: 51 kg

DRUGS (1)
  1. MEGACE [Suspect]
     Indication: INCREASED APPETITE
     Dates: start: 20060115, end: 20060118

REACTIONS (1)
  - PLATELET COUNT DECREASED [None]
